FAERS Safety Report 5863406-X (Version None)
Quarter: 2008Q3

REPORT INFORMATION
  Report Type: 
  Country: None (occurrence: None)
  Receive Date: 20080828
  Receipt Date: 20080821
  Transmission Date: 20090109
  Serious: Yes (Hospitalization)
  Sender: FDA-Public Use
  Company Number: PHBS2008BG05494

PATIENT
  Age: 34 Year
  Sex: Female

DRUGS (3)
  1. CARBAMAZEPINE [Suspect]
     Indication: CONVULSION
     Route: 065
  2. ACETAMINOPHEN [Concomitant]
     Dosage: UNK
     Route: 065
  3. SULFAMETHOXAZOLE/TRIMETHOPRIM ^DAK^ [Concomitant]
     Dosage: UNK
     Route: 065

REACTIONS (9)
  - BODY TEMPERATURE INCREASED [None]
  - CHEILITIS [None]
  - CHILLS [None]
  - DERMATITIS [None]
  - DRUG RASH WITH EOSINOPHILIA AND SYSTEMIC SYMPTOMS [None]
  - LYMPHADENOPATHY [None]
  - PERIORBITAL OEDEMA [None]
  - RASH MACULO-PAPULAR [None]
  - RASH PRURITIC [None]
